FAERS Safety Report 22225204 (Version 16)
Quarter: 2025Q1

REPORT INFORMATION
  Report Type: Report from Study
  Country: US (occurrence: US)
  Receive Date: 20230418
  Receipt Date: 20250325
  Transmission Date: 20250408
  Serious: Yes (Hospitalization, Other)
  Sender: TAKEDA
  Company Number: US-PAREXEL-2021-KAM-US003327

PATIENT
  Age: 84 Year
  Sex: Male
  Weight: 80 kg

DRUGS (40)
  1. GLASSIA [Suspect]
     Active Substance: .ALPHA.1-PROTEINASE INHIBITOR HUMAN
     Indication: Alpha-1 antitrypsin deficiency
     Dosage: 6000 MILLIGRAM, 1/WEEK
     Dates: start: 20190308
  2. GLASSIA [Suspect]
     Active Substance: .ALPHA.1-PROTEINASE INHIBITOR HUMAN
  3. GLASSIA [Suspect]
     Active Substance: .ALPHA.1-PROTEINASE INHIBITOR HUMAN
     Dosage: 75 MILLIGRAM/KILOGRAM, 1/WEEK
  4. EPINEPHRINE [Concomitant]
     Active Substance: EPINEPHRINE
  5. DILTIAZEM [Concomitant]
     Active Substance: DILTIAZEM
  6. PREDNISONE [Concomitant]
     Active Substance: PREDNISONE
  7. ARICEPT [Concomitant]
     Active Substance: DONEPEZIL HYDROCHLORIDE
  8. FISH OIL [Concomitant]
     Active Substance: FISH OIL
  9. SPIRIVA [Concomitant]
     Active Substance: TIOTROPIUM BROMIDE MONOHYDRATE
  10. POTASSIUM CHLORIDE [Concomitant]
     Active Substance: POTASSIUM CHLORIDE
  11. BREO ELLIPTA [Concomitant]
     Active Substance: FLUTICASONE FUROATE\VILANTEROL TRIFENATATE
  12. VITAMIN B COMPLEX [Concomitant]
     Active Substance: CYANOCOBALAMIN\DEXPANTHENOL\NIACINAMIDE\PYRIDOXINE HYDROCHLORIDE\RIBOFLAVIN 5^-PHOSPHATE SODIUM\THIA
  13. SODIUM CHLORIDE [Concomitant]
     Active Substance: SODIUM CHLORIDE
  14. ALLOPURINOL [Concomitant]
     Active Substance: ALLOPURINOL
  15. PRAVASTATIN SODIUM [Concomitant]
     Active Substance: PRAVASTATIN SODIUM
  16. FINASTERIDE [Concomitant]
     Active Substance: FINASTERIDE
  17. ELIQUIS [Concomitant]
     Active Substance: APIXABAN
  18. FENOFIBRATE [Concomitant]
     Active Substance: FENOFIBRATE
  19. ATORVASTATIN [Concomitant]
     Active Substance: ATORVASTATIN
  20. VITAMIN D3 [Concomitant]
     Active Substance: CHOLECALCIFEROL
  21. MECLIZINE HYDROCHLORIDE [Concomitant]
     Active Substance: MECLIZINE HYDROCHLORIDE
  22. LISINOPRIL [Concomitant]
     Active Substance: LISINOPRIL
  23. OXYGEN [Concomitant]
     Active Substance: OXYGEN
  24. ASPIRIN [Concomitant]
     Active Substance: ASPIRIN
  25. PHENOBARBITAL [Concomitant]
     Active Substance: PHENOBARBITAL
  26. DIPHENHYDRAMINE HYDROCHLORIDE [Concomitant]
     Active Substance: DIPHENHYDRAMINE HYDROCHLORIDE
  27. Lmx [Concomitant]
  28. CETIRIZINE HCL [Concomitant]
     Active Substance: CETIRIZINE HYDROCHLORIDE
  29. MAGNESIUM [Concomitant]
     Active Substance: MAGNESIUM
  30. FERROUS SULFATE [Concomitant]
     Active Substance: FERROUS SULFATE
  31. HYDROCHLOROTHIAZIDE [Concomitant]
     Active Substance: HYDROCHLOROTHIAZIDE
  32. CALCIUM [Concomitant]
     Active Substance: CALCIUM
  33. VITAMIN B1 [Concomitant]
     Active Substance: THIAMINE HYDROCHLORIDE
  34. VITAMIN B [Concomitant]
     Active Substance: VITAMIN B
  35. ATORVASTATIN CALCIUM [Concomitant]
     Active Substance: ATORVASTATIN CALCIUM
  36. ACETAMINOPHEN\HYDROCODONE [Concomitant]
     Active Substance: ACETAMINOPHEN\HYDROCODONE
  37. FUROSEMIDE [Concomitant]
     Active Substance: FUROSEMIDE
  38. TRELEGY ELLIPTA [Concomitant]
     Active Substance: FLUTICASONE FUROATE\UMECLIDINIUM BROMIDE\VILANTEROL TRIFENATATE
  39. IBUPROFEN [Concomitant]
     Active Substance: IBUPROFEN
  40. AZITHROMYCIN [Concomitant]
     Active Substance: AZITHROMYCIN

REACTIONS (17)
  - Respiratory syncytial virus infection [Unknown]
  - COVID-19 [Recovered/Resolved]
  - Tibia fracture [Recovering/Resolving]
  - Fibula fracture [Recovering/Resolving]
  - Fall [Unknown]
  - Muscular weakness [Unknown]
  - Rib fracture [Unknown]
  - Contusion [Unknown]
  - Pain [Unknown]
  - Incorrect dose administered [Unknown]
  - Product dose omission issue [Unknown]
  - Coccydynia [Unknown]
  - Influenza [Unknown]
  - Head injury [Unknown]
  - Oedema peripheral [Unknown]
  - Back pain [Unknown]
  - Cough [Unknown]

NARRATIVE: CASE EVENT DATE: 20230913
